FAERS Safety Report 10078990 (Version 1)
Quarter: 2014Q2

REPORT INFORMATION
  Report Type: Spontaneous
  Country: CH (occurrence: CH)
  Receive Date: 20140415
  Receipt Date: 20140415
  Transmission Date: 20141212
  Serious: Yes (Hospitalization)
  Sender: FDA-Public Use
  Company Number: CH-PFIZER INC-2014101599

PATIENT
  Age: 72 Year
  Sex: Female

DRUGS (18)
  1. ARTHROTEC [Suspect]
     Dosage: 75 MG/200 UG, 2X/DAY
     Route: 048
     Dates: end: 201402
  2. TOREM [Concomitant]
     Dosage: 20 MG, 3X/DAY
     Route: 048
  3. TOREM [Concomitant]
     Dosage: 10 MG, DAILY
  4. MARCOUMAR [Concomitant]
     Dosage: 3 MG, AS NEEDED
     Route: 048
  5. AMLODIPINE [Concomitant]
     Dosage: 10 MG, 1X/DAY
     Route: 048
     Dates: end: 201402
  6. TAMSULOSIN [Concomitant]
     Dosage: UNK
     Route: 048
     Dates: end: 201402
  7. JANUVIA [Concomitant]
     Dosage: 50 MG, 2X/DAY
     Route: 048
  8. PANTOPRAZOL [Concomitant]
     Dosage: 40 MG, 1X/DAY
     Route: 048
  9. QUETIAPINE [Concomitant]
     Dosage: 100 MG, 1X/DAY
     Route: 048
  10. VENLAFAXINE [Concomitant]
     Dosage: 300 MG, 1X/DAY
     Route: 048
  11. TEMESTA [Concomitant]
     Dosage: 0.5 MG, 1X/DAY
     Route: 048
  12. ATORVASTATIN [Concomitant]
     Dosage: 20 MG, 1X/DAY
     Route: 048
  13. METO ZEROK [Concomitant]
     Dosage: 50 MG, 2X/DAY
     Route: 048
  14. OXYCODONE [Concomitant]
     Dosage: 5 MG, 2X/DAY
     Route: 048
     Dates: end: 201402
  15. VALSARTAN [Concomitant]
     Dosage: 80 MG, 1X/DAY
     Route: 048
     Dates: end: 201402
  16. ELTROXIN [Concomitant]
     Dosage: 0.1 MG, 1X/DAY
     Route: 048
  17. MOVICOL [Concomitant]
     Dosage: 1 DF, 1X/DAY
     Route: 048
  18. LAXOBERON [Concomitant]
     Dosage: 10 GTT, 1X/DAY
     Route: 048

REACTIONS (1)
  - Cardiac failure [Recovered/Resolved]
